FAERS Safety Report 7330330-5 (Version None)
Quarter: 2011Q1

REPORT INFORMATION
  Report Type: 
  Country: None (occurrence: None)
  Receive Date: 20110304
  Receipt Date: 20110223
  Transmission Date: 20110831
  Serious: Yes (Hospitalization)
  Sender: FDA-Public Use
  Company Number: US-BIOGENIDEC-2009BI034396

PATIENT
  Age: 60 Year
  Sex: Male
  Weight: 79 kg

DRUGS (6)
  1. FLEXERIL [Concomitant]
     Indication: MUSCLE SPASMS
  2. TYSABRI [Suspect]
     Indication: MULTIPLE SCLEROSIS
     Route: 042
     Dates: start: 20090201, end: 20090701
  3. SERTRALINE [Concomitant]
     Indication: MOOD SWINGS
  4. TYSABRI [Suspect]
     Route: 042
     Dates: start: 20110101
  5. TRILEPTAL [Concomitant]
     Indication: MOOD SWINGS
  6. LISINOPRIL [Concomitant]
     Indication: HYPERTENSION

REACTIONS (8)
  - URINARY TRACT INFECTION [None]
  - LETHARGY [None]
  - KIDNEY INFECTION [None]
  - HYPOTENSION [None]
  - CYSTITIS [None]
  - CALCULUS URETERIC [None]
  - URINARY RETENTION [None]
  - RASH [None]
